FAERS Safety Report 5292393-0 (Version None)
Quarter: 2007Q2

REPORT INFORMATION
  Report Type: 
  Country: None (occurrence: None)
  Receive Date: 20070410
  Receipt Date: 20070329
  Transmission Date: 20071010
  Serious: Yes (Life-Threatening, Hospitalization, Other)
  Sender: FDA-Public Use
  Company Number: US-PFIZER INC-2004058193

PATIENT
  Sex: Female
  Weight: 79.4 kg

DRUGS (9)
  1. NEURONTIN [Suspect]
     Indication: PAIN
     Route: 048
     Dates: start: 20040525, end: 20040707
  2. NEURONTIN [Suspect]
     Indication: NERVE INJURY
  3. WELLBUTRIN XL [Concomitant]
     Route: 065
  4. LIBRIUM [Concomitant]
     Route: 065
  5. ZANAFLEX [Concomitant]
     Route: 065
  6. VICODIN ES [Concomitant]
     Route: 065
  7. DEPO-ESTRADIOL [Concomitant]
     Route: 065
  8. VITAMINS [Concomitant]
     Route: 065
  9. LORCET-HD [Concomitant]
     Route: 065

REACTIONS (7)
  - AGITATION [None]
  - ANGER [None]
  - CRYING [None]
  - DEPRESSION [None]
  - MEMORY IMPAIRMENT [None]
  - PAIN [None]
  - SUICIDE ATTEMPT [None]
